FAERS Safety Report 11867980 (Version 1)
Quarter: 2015Q4

REPORT INFORMATION
  Report Type: Spontaneous
  Country: CA (occurrence: CA)
  Receive Date: 20151224
  Receipt Date: 20151224
  Transmission Date: 20160305
  Serious: Yes (Disabling)
  Sender: FDA-Public Use
  Company Number: CA-009507513-1512CAN002953

PATIENT
  Age: 88 Year
  Sex: Female
  Weight: 50 kg

DRUGS (18)
  1. COLASE [Concomitant]
     Dosage: 100 MG X 2 BEFORE BREAKFAST
     Route: 065
  2. LYRICA [Concomitant]
     Active Substance: PREGABALIN
     Dosage: 150 MG, AFTER DINNER (6-7 PM)
     Route: 065
  3. DOMPERIDONE [Concomitant]
     Active Substance: DOMPERIDONE
     Dosage: 10 MG, BEFORE BREAKFAST, LUNCH AND DINNER (6-7 PM)
     Route: 065
  4. SENOKOT [Concomitant]
     Active Substance: SENNOSIDES
     Dosage: 8.6 MG X 2 BEFORE BREAKFAST
     Route: 065
  5. KEYTRUDA [Suspect]
     Active Substance: PEMBROLIZUMAB
     Indication: RENAL CANCER
     Dosage: 100 MG, EVERY 3 WEEKS (Q3W)
     Route: 042
     Dates: start: 20150809
  6. METADOL [Concomitant]
     Dosage: 5MG AT 8 AM, BEFORE LUNCH AT 3 PM AND AROUND 10 PM
     Route: 065
  7. FENTANYL. [Concomitant]
     Active Substance: FENTANYL
     Dosage: 50 MICROGRAM, Q3D
     Route: 065
     Dates: start: 201507
  8. COLASE [Concomitant]
     Dosage: 100 MG X 2 AFTER DINNER (6-7 PM)
     Route: 065
  9. FENTANYL. [Concomitant]
     Active Substance: FENTANYL
     Dosage: UNK
     Route: 065
     Dates: start: 20120602
  10. ABSTRAL [Concomitant]
     Active Substance: FENTANYL CITRATE
     Indication: BREAKTHROUGH PAIN
     Dosage: 200 MICROGRAM MAX 3 DAYS
     Route: 060
  11. AVENTYL [Concomitant]
     Dosage: 10 MG 1 OR 2 BEFORE BED
     Route: 065
  12. MORPHINE SULFATE. [Concomitant]
     Active Substance: MORPHINE SULFATE
     Indication: BREAKTHROUGH PAIN
     Dosage: 3 OR 5 MG (DEPENDING ON PAIN LEVEL) CAN DO EVERY HOUR IF NECESSARY
     Route: 048
  13. PREDNISONE. [Concomitant]
     Active Substance: PREDNISONE
     Dosage: 20 (UNIT UNKNOWN) WITH BREAKFAST
     Route: 048
  14. LACTULOSE. [Concomitant]
     Active Substance: LACTULOSE
     Dosage: 30 ML, AS NEEDED AROUND 10 PM
     Route: 065
  15. FENTANYL. [Concomitant]
     Active Substance: FENTANYL
     Dosage: INCREASED TO 37.5
     Route: 065
     Dates: start: 201412
  16. SENOKOT [Concomitant]
     Active Substance: SENNOSIDES
     Dosage: 8.6 MG X 2 AFTER DINNER (6-7 PM)
     Route: 065
  17. FENTANYL. [Concomitant]
     Active Substance: FENTANYL
     Dosage: INCREASED TO 25
     Route: 065
     Dates: start: 20130715
  18. LYRICA [Concomitant]
     Active Substance: PREGABALIN
     Dosage: 150 MG, BEFORE BREAKFAST
     Route: 065

REACTIONS (5)
  - Stomatitis [Recovered/Resolved]
  - Urinary tract infection [Unknown]
  - Product use issue [Unknown]
  - Chest pain [Not Recovered/Not Resolved]
  - Oral disorder [Recovered/Resolved]

NARRATIVE: CASE EVENT DATE: 2015
